FAERS Safety Report 22005836 (Version 1)
Quarter: 2023Q1

REPORT INFORMATION
  Report Type: Spontaneous
  Country: US (occurrence: None)
  Receive Date: 20230216
  Receipt Date: 20230216
  Transmission Date: 20230417
  Serious: Yes (Hospitalization)
  Sender: FDA-Public Use
  Company Number: None

PATIENT
  Sex: Male

DRUGS (2)
  1. ADVATE [Suspect]
     Active Substance: ANTIHEMOPHILIC FACTOR, HUMAN RECOMBINANT
     Indication: Factor VIII deficiency
     Dosage: OTHER STRENGTH : 253U;?OTHER QUANTITY : 1350U;?FREQUENCY : TWICE A WEEK;?
     Route: 042
     Dates: start: 20191015
  2. ADVATE [Suspect]
     Active Substance: ANTIHEMOPHILIC FACTOR, HUMAN RECOMBINANT
     Indication: Factor VIII deficiency
     Dosage: OTHER STRENGTH : 1082U;?OTHER QUANTITY : 1350U;?FREQUENCY : TWICE A WEEK;?
     Route: 042
     Dates: start: 202302

REACTIONS (1)
  - Asthma [None]
